FAERS Safety Report 6812517-0 (Version None)
Quarter: 2010Q3

REPORT INFORMATION
  Report Type: 
  Country: None (occurrence: None)
  Receive Date: 20100701
  Receipt Date: 20100628
  Transmission Date: 20110219
  Serious: Yes (Other)
  Sender: FDA-Public Use
  Company Number: A0863389A

PATIENT
  Age: 42 Year
  Sex: Male

DRUGS (2)
  1. ALLI [Suspect]
     Indication: PRODUCT USED FOR UNKNOWN INDICATION
     Route: 048
  2. UNKNOWN [Concomitant]

REACTIONS (3)
  - ANAEMIA [None]
  - BLOOD UREA INCREASED [None]
  - NEPHROPATHY [None]
